FAERS Safety Report 10215306 (Version 1)
Quarter: 2014Q2

REPORT INFORMATION
  Report Type: Spontaneous
  Country: US (occurrence: US)
  Receive Date: 20140603
  Receipt Date: 20140603
  Transmission Date: 20141212
  Serious: No
  Sender: FDA-Public Use
  Company Number: US-009507513-1405USA010812

PATIENT
  Sex: Female

DRUGS (1)
  1. NEXPLANON [Suspect]
     Dosage: ONE ROD / ONCE
     Route: 059

REACTIONS (3)
  - Device kink [Unknown]
  - Device dislocation [Unknown]
  - Contusion [Unknown]
